FAERS Safety Report 9897685 (Version 3)
Quarter: 2014Q2

REPORT INFORMATION
  Report Type: Spontaneous
  Country: CA (occurrence: CA)
  Receive Date: 20140214
  Receipt Date: 20140521
  Transmission Date: 20141212
  Serious: Yes (Other)
  Sender: FDA-Public Use
  Company Number: CA-SA-2014SA016875

PATIENT
  Age: 44 Year
  Sex: Female
  Weight: 75 kg

DRUGS (4)
  1. FABRAZYME [Suspect]
     Indication: FABRY^S DISEASE
     Route: 042
     Dates: start: 201206, end: 20140206
  2. FABRAZYME [Suspect]
     Indication: FABRY^S DISEASE
     Route: 042
     Dates: start: 201206, end: 20140206
  3. FABRAZYME [Suspect]
     Indication: FABRY^S DISEASE
     Route: 042
  4. PLAVIX [Concomitant]

REACTIONS (12)
  - Cystitis [Not Recovered/Not Resolved]
  - Haematochezia [Unknown]
  - Micturition urgency [Unknown]
  - Dysuria [Unknown]
  - Back pain [Unknown]
  - Pollakiuria [Unknown]
  - Abdominal pain [Unknown]
  - Dysuria [Not Recovered/Not Resolved]
  - Kidney infection [Not Recovered/Not Resolved]
  - Weight decreased [Not Recovered/Not Resolved]
  - Pruritus [Recovered/Resolved]
  - Infusion site erythema [Recovered/Resolved]
